FAERS Safety Report 11496369 (Version 1)
Quarter: 2015Q3

REPORT INFORMATION
  Report Type: Spontaneous
  Country: US (occurrence: US)
  Receive Date: 20150911
  Receipt Date: 20150911
  Transmission Date: 20151125
  Serious: Yes (Hospitalization, Other)
  Sender: FDA-Public Use
  Company Number: PHHY2015US108860

PATIENT
  Age: 64 Year
  Sex: Male

DRUGS (2)
  1. HEPARIN [Suspect]
     Active Substance: HEPARIN SODIUM
     Indication: CHEST PAIN
  2. HEPARIN [Suspect]
     Active Substance: HEPARIN SODIUM
     Indication: DYSPNOEA
     Dosage: 8000 U, UNK
     Route: 040

REACTIONS (3)
  - Thrombocytopenia [Recovered/Resolved]
  - Brain injury [Unknown]
  - Cardio-respiratory arrest [Unknown]
